FAERS Safety Report 6102468-1 (Version None)
Quarter: 2009Q1

REPORT INFORMATION
  Report Type: 
  Country: None (occurrence: None)
  Receive Date: 20090304
  Receipt Date: 20090218
  Transmission Date: 20090719
  Serious: Yes (Death)
  Sender: FDA-Public Use
  Company Number: HK-ELI_LILLY_AND_COMPANY-HK200902004276

PATIENT
  Sex: Female

DRUGS (3)
  1. FORTEO [Suspect]
     Indication: OSTEOPOROSIS
     Dosage: 20 UG, UNKNOWN
     Route: 030
     Dates: start: 20080403
  2. NIFEDIPINE [Concomitant]
     Dosage: 30 MG, UNKNOWN
     Route: 048
     Dates: start: 19930101
  3. INDAPAMIDE [Concomitant]
     Dosage: 1.25 MG, UNKNOWN
     Route: 048
     Dates: start: 19930101

REACTIONS (1)
  - DEATH [None]
